FAERS Safety Report 17032304 (Version 1)
Quarter: 2019Q4

REPORT INFORMATION
  Report Type: Spontaneous
  Country: US (occurrence: US)
  Receive Date: 20191114
  Receipt Date: 20191114
  Transmission Date: 20200122
  Serious: Yes (Hospitalization)
  Sender: FDA-Public Use
  Company Number: US-GUERBET-US-20190267

PATIENT
  Age: 64 Year
  Sex: Female
  Weight: 97.5 kg

DRUGS (1)
  1. DOTAREM [Suspect]
     Active Substance: GADOTERATE MEGLUMINE
     Indication: MAGNETIC RESONANCE IMAGING ABDOMINAL
     Route: 042
     Dates: start: 20191031, end: 20191031

REACTIONS (4)
  - Unresponsive to stimuli [Recovering/Resolving]
  - Vomiting [Recovering/Resolving]
  - Feeling hot [Recovering/Resolving]
  - Product use in unapproved indication [Recovered/Resolved]

NARRATIVE: CASE EVENT DATE: 20191031
